FAERS Safety Report 18361100 (Version 1)
Quarter: 2020Q4

REPORT INFORMATION
  Report Type: Report from Study
  Country: US (occurrence: US)
  Receive Date: 20201008
  Receipt Date: 20201008
  Transmission Date: 20210114
  Serious: Yes (Other)
  Sender: FDA-Public Use
  Company Number: US-BIOGEN-2020BI00931033

PATIENT
  Age: 62 Year
  Sex: Female

DRUGS (1)
  1. TECFIDERA [Suspect]
     Active Substance: DIMETHYL FUMARATE
     Indication: MULTIPLE SCLEROSIS
     Dosage: MAINTENANCE DOSE
     Route: 048
     Dates: start: 2017

REACTIONS (4)
  - Product dose omission issue [Recovered/Resolved]
  - Dizziness [Recovered/Resolved]
  - Nausea [Recovered/Resolved]
  - Blindness transient [Recovered/Resolved]

NARRATIVE: CASE EVENT DATE: 202009
